FAERS Safety Report 6746732-1 (Version None)
Quarter: 2010Q2

REPORT INFORMATION
  Report Type: 
  Country: None (occurrence: None)
  Receive Date: 20100528
  Receipt Date: 20090925
  Transmission Date: 20101027
  Serious: No
  Sender: FDA-Public Use
  Company Number: A0788811A

PATIENT
  Age: 86 Year
  Sex: Female

DRUGS (6)
  1. VENTOLIN [Suspect]
     Indication: ASTHMA
     Route: 055
     Dates: start: 20090519
  2. COZAAR [Concomitant]
  3. POTASSIUM [Concomitant]
  4. OMEPRAZOLE [Concomitant]
  5. IRON [Concomitant]
  6. TRAMADOL [Concomitant]

REACTIONS (3)
  - DYSPNOEA [None]
  - PRODUCT QUALITY ISSUE [None]
  - WHEEZING [None]
